FAERS Safety Report 4424655-0 (Version None)
Quarter: 2004Q3

REPORT INFORMATION
  Report Type: 
  Country: None (occurrence: None)
  Receive Date: 20040805
  Receipt Date: 20040723
  Transmission Date: 20050211
  Serious: Yes (Hospitalization)
  Sender: FDA-Public Use
  Company Number: 02100-JPN-04-0214

PATIENT
  Age: 36 Year
  Sex: Male

DRUGS (5)
  1. CILOSTAZOL [Suspect]
     Indication: THROMBOANGIITIS OBLITERANS
     Dosage: 200 MG, ORAL
     Route: 048
     Dates: start: 20030506, end: 20031101
  2. CILOSTAZOL [Suspect]
     Indication: THROMBOANGIITIS OBLITERANS
     Dosage: 200 MG, ORAL
     Route: 048
     Dates: start: 20040301, end: 20040508
  3. LAFUTIDINE [Concomitant]
  4. BERAPROST SODIUM [Concomitant]
  5. OMEPRAZOLE [Concomitant]

REACTIONS (2)
  - HEADACHE [None]
  - INTERSTITIAL LUNG DISEASE [None]
